FAERS Safety Report 17466925 (Version 1)
Quarter: 2020Q1

REPORT INFORMATION
  Report Type: Spontaneous
  Country: CH (occurrence: CH)
  Receive Date: 20200227
  Receipt Date: 20200227
  Transmission Date: 20200409
  Serious: Yes (Other)
  Sender: FDA-Public Use
  Company Number: CH-TAKEDA-2019TUS070538

PATIENT
  Sex: Male

DRUGS (1)
  1. ICLUSIG [Suspect]
     Active Substance: PONATINIB
     Indication: PROSTATE CANCER METASTATIC
     Dosage: 30 MILLIGRAM, QD
     Route: 048
     Dates: start: 20191202

REACTIONS (3)
  - Prostate cancer metastatic [Unknown]
  - Disease progression [Unknown]
  - Off label use [Unknown]
